FAERS Safety Report 6892444-3 (Version None)
Quarter: 2010Q3

REPORT INFORMATION
  Report Type: 
  Country: None (occurrence: None)
  Receive Date: 20100731
  Receipt Date: 20080626
  Transmission Date: 20110219
  Serious: No
  Sender: FDA-Public Use
  Company Number: US-PFIZER INC-2008035230

PATIENT
  Sex: Female
  Weight: 84.37 kg

DRUGS (2)
  1. NORVASC [Suspect]
  2. AMLODIPINE [Suspect]

REACTIONS (3)
  - CHEST PAIN [None]
  - HEADACHE [None]
  - RASH [None]
